FAERS Safety Report 5048589-6 (Version None)
Quarter: 2006Q3

REPORT INFORMATION
  Report Type: 
  Country: None (occurrence: None)
  Receive Date: 20060705
  Receipt Date: 20060627
  Transmission Date: 20061208
  Serious: Yes (Hospitalization)
  Sender: FDA-Public Use
  Company Number: DEWYE828827JUN06

PATIENT
  Age: 14 Year
  Sex: Male

DRUGS (6)
  1. VENLAFAXINE HCL [Suspect]
     Dosage: OVERDOSE AMOUNT
     Route: 048
     Dates: start: 20060626, end: 20060626
  2. METHADONE HCL [Concomitant]
     Dosage: OVERDOSE AMOUNT
     Dates: start: 20060626, end: 20060626
  3. MIRTAZAPINE [Concomitant]
     Dosage: OVERDOSE AMOUNT
     Route: 048
     Dates: start: 20060626, end: 20060626
  4. OPIOIDS [Concomitant]
     Dosage: OVERDOSE AMOUNT
     Dates: start: 20060626, end: 20060626
  5. TAXILAN (PERAZINE, , 0) [Concomitant]
     Dosage: OVERDOSE AMOUNT
     Route: 048
     Dates: start: 20060626, end: 20060626
  6. ZOPICLONE (ZOPICLONE, , 0) [Suspect]
     Dosage: OVERDOSE AMOUNT
     Route: 048
     Dates: start: 20060626, end: 20060626

REACTIONS (4)
  - DRUG SCREEN POSITIVE [None]
  - EXTRAPYRAMIDAL DISORDER [None]
  - MULTIPLE DRUG OVERDOSE [None]
  - SOMNOLENCE [None]
